FAERS Safety Report 10844837 (Version 1)
Quarter: 2015Q1

REPORT INFORMATION
  Report Type: Spontaneous
  Country: CH (occurrence: CH)
  Receive Date: 20150220
  Receipt Date: 20150220
  Transmission Date: 20150721
  Serious: Yes (Hospitalization)
  Sender: FDA-Public Use
  Company Number: CH-ELI_LILLY_AND_COMPANY-CH201501011144

PATIENT
  Age: 87 Year
  Sex: Female
  Weight: 76 kg

DRUGS (13)
  1. CIPRALEX [Concomitant]
     Active Substance: ESCITALOPRAM OXALATE
  2. TRANXILIUM [Concomitant]
     Active Substance: CLORAZEPATE DIPOTASSIUM
     Dosage: 10 MG, QD
     Route: 048
  3. ESOMEP                             /01479301/ [Concomitant]
  4. DIAMICRON [Concomitant]
     Active Substance: GLICLAZIDE
     Dosage: 120 MG, QD
  5. CIBADREX [Concomitant]
     Active Substance: BENAZEPRIL HYDROCHLORIDE
  6. CYMBALTA [Suspect]
     Active Substance: DULOXETINE HYDROCHLORIDE
     Indication: DELIRIUM
     Dosage: 30MG, QD
     Route: 048
     Dates: start: 20140215, end: 20140313
  7. NOVORAPID [Concomitant]
     Active Substance: INSULIN ASPART
  8. ASA [Concomitant]
     Active Substance: ASPIRIN
     Dosage: 100 MG, QD
     Route: 048
  9. ACETALGIN [Concomitant]
  10. ISONEP [Concomitant]
  11. ELTROXIN [Concomitant]
     Active Substance: LEVOTHYROXINE
     Dosage: UNK UNK, QD
  12. TROZIMID [Concomitant]
  13. CALCIMAGON D3 [Concomitant]
     Active Substance: CALCIUM\CHOLECALCIFEROL

REACTIONS (4)
  - Psychomotor hyperactivity [Recovered/Resolved]
  - Delirium [Recovered/Resolved]
  - Psychotic behaviour [Recovered/Resolved]
  - Off label use [Unknown]

NARRATIVE: CASE EVENT DATE: 20140305
